FAERS Safety Report 5161761-X (Version None)
Quarter: 2006Q4

REPORT INFORMATION
  Report Type: 
  Country: None (occurrence: None)
  Receive Date: 20061121
  Receipt Date: 20061109
  Transmission Date: 20070319
  Serious: Yes (Hospitalization, Disabling)
  Sender: FDA-Public Use
  Company Number: 2006100678

PATIENT
  Age: 65 Year
  Sex: Female
  Weight: 60 kg

DRUGS (9)
  1. EPIRUBICIN [Suspect]
     Indication: BREAST CANCER
     Dosage: 110 MG (110 MG, 1 IN 1 D)
     Dates: start: 20050902, end: 20051118
  2. FLUOROURACIL [Suspect]
     Indication: BREAST CANCER
     Dosage: 800 MG (110 MG, 1 IN 1 D)
     Dates: start: 20050902, end: 20051118
  3. CYCLOPHOSPHAMIDE [Concomitant]
  4. PAXIL [Concomitant]
  5. DEPROMEL (FLUVOXAMINE MALEATE) [Concomitant]
  6. FLUMEZIN (FLUPHENAZINE) [Concomitant]
  7. ARTANE [Concomitant]
  8. LORAZEPAM [Concomitant]
  9. ARICEPT [Concomitant]

REACTIONS (2)
  - INTERSTITIAL LUNG DISEASE [None]
  - LYMPHOCYTE STIMULATION TEST POSITIVE [None]
